FAERS Safety Report 10206751 (Version 1)
Quarter: 2014Q2

REPORT INFORMATION
  Report Type: Spontaneous
  Country: US (occurrence: None)
  Receive Date: 20140528
  Receipt Date: 20140528
  Transmission Date: 20141212
  Serious: Yes (Hospitalization)
  Sender: FDA-Public Use
  Company Number: None

PATIENT
  Age: 85 Year
  Sex: Female

DRUGS (1)
  1. METOPROLOL SUCCINATE TAB 50MG ACTAVIS [Suspect]
     Indication: HYPERTENSION
     Route: 048
     Dates: start: 20140501, end: 20140502

REACTIONS (1)
  - Blood pressure increased [None]
